FAERS Safety Report 7308817-0 (Version None)
Quarter: 2011Q1

REPORT INFORMATION
  Report Type: 
  Country: None (occurrence: None)
  Receive Date: 20110223
  Receipt Date: 20110218
  Transmission Date: 20110831
  Serious: Yes (Hospitalization)
  Sender: FDA-Public Use
  Company Number: IT-PFIZER INC-2011036053

PATIENT
  Age: 43 Year
  Sex: Male

DRUGS (2)
  1. LYRICA [Suspect]
     Indication: BACK PAIN
     Dosage: 75 MG, 1X/DAY
     Route: 048
     Dates: start: 20101030, end: 20101112
  2. ASPIRIN [Suspect]
     Dosage: UNK
     Dates: start: 20101109, end: 20101112

REACTIONS (1)
  - VIITH NERVE PARALYSIS [None]
